FAERS Safety Report 6065710-1 (Version None)
Quarter: 2009Q1

REPORT INFORMATION
  Report Type: 
  Country: None (occurrence: None)
  Receive Date: 20090130
  Receipt Date: 20090121
  Transmission Date: 20090719
  Serious: Yes (Life-Threatening)
  Sender: FDA-Public Use
  Company Number: GXKR2009AU01024

PATIENT
  Age: 45 Year
  Sex: Female

DRUGS (5)
  1. HYDROXYCHLOROQUINE SULFATE [Suspect]
     Dosage: 20 G, ONCE/SINGLE, ORAL
     Route: 048
  2. ACETAMINOPHEN [Suspect]
     Dosage: 12 G, ONCE/SINGLE, ORAL
     Route: 048
  3. CLARITHROMYCIN [Suspect]
     Dosage: 3.5 G, ONCE/SINGLE, ORAL
     Route: 048
  4. CELECOXIB [Suspect]
     Dosage: 2 G, ONCE/SINGLE, ORAL
     Route: 048
  5. ALCOHOL (ETHANOL) [Concomitant]

REACTIONS (11)
  - BLOOD LACTIC ACID INCREASED [None]
  - BLOOD PH DECREASED [None]
  - CIRCULATORY COLLAPSE [None]
  - DYSPNOEA [None]
  - ELECTROCARDIOGRAM QRS COMPLEX PROLONGED [None]
  - ELECTROMECHANICAL DISSOCIATION [None]
  - HYPOKALAEMIA [None]
  - HYPOTHERMIA [None]
  - INTENTIONAL OVERDOSE [None]
  - LOSS OF CONSCIOUSNESS [None]
  - MYOPATHY [None]
